FAERS Safety Report 8051603-7 (Version None)
Quarter: 2012Q1

REPORT INFORMATION
  Report Type: 
  Country: None (occurrence: None)
  Receive Date: 20120118
  Receipt Date: 20120109
  Transmission Date: 20120608
  Serious: Yes (Hospitalization)
  Sender: FDA-Public Use
  Company Number: US-BIOGENIDEC-2009BI015595

PATIENT
  Age: 58 Year
  Sex: Male

DRUGS (2)
  1. AVONEX [Suspect]
     Indication: MULTIPLE SCLEROSIS
     Route: 030
     Dates: start: 20020901
  2. AVONEX [Suspect]
     Route: 030
     Dates: start: 20021012

REACTIONS (4)
  - HEMIPARESIS [None]
  - COGNITIVE DISORDER [None]
  - SPEECH DISORDER [None]
  - CEREBROVASCULAR ACCIDENT [None]
